FAERS Safety Report 9365757 (Version 1)
Quarter: 2013Q2

REPORT INFORMATION
  Report Type: Spontaneous
  Country: US (occurrence: US)
  Receive Date: 20130625
  Receipt Date: 20130625
  Transmission Date: 20140414
  Serious: No
  Sender: FDA-Public Use
  Company Number: US-BAYER-2013-072517

PATIENT
  Age: 32 Year
  Sex: Female

DRUGS (1)
  1. MIRENA [Suspect]
     Indication: CONTRACEPTION
     Dosage: 20 MCG/24HR, CONT
     Route: 015
     Dates: start: 2008

REACTIONS (8)
  - Feeling abnormal [None]
  - Device misuse [None]
  - Vomiting [None]
  - Nausea [None]
  - Back pain [None]
  - Abdominal pain lower [None]
  - Abdominal discomfort [None]
  - Headache [None]
